FAERS Safety Report 7413571-8 (Version None)
Quarter: 2011Q2

REPORT INFORMATION
  Report Type: 
  Country: None (occurrence: None)
  Receive Date: 20110413
  Receipt Date: 20110127
  Transmission Date: 20111010
  Serious: No
  Sender: FDA-Public Use
  Company Number: US-B.I. PHARMACEUTICALS,INC./RIDGEFIELD-2011-BP-02918BP

PATIENT
  Sex: Male

DRUGS (6)
  1. TOVIAZ [Concomitant]
     Indication: HYPERTONIC BLADDER
     Route: 048
  2. ALDACTONE [Concomitant]
     Indication: DIURETIC THERAPY
     Route: 048
  3. VITAMINS [Concomitant]
     Indication: SUPPLEMENTATION THERAPY
     Route: 048
  4. PRADAXA [Suspect]
     Indication: ATRIAL FIBRILLATION
     Dosage: 300 MG
     Route: 048
     Dates: start: 20110101, end: 20110127
  5. LIPITOR [Concomitant]
     Indication: BLOOD CHOLESTEROL INCREASED
     Route: 048
  6. LASIX [Concomitant]
     Indication: DIURETIC THERAPY
     Route: 048

REACTIONS (2)
  - WEIGHT DECREASED [None]
  - DIARRHOEA [None]
